FAERS Safety Report 10272316 (Version 2)
Quarter: 2015Q2

REPORT INFORMATION
  Report Type: Report from Study
  Country: CA (occurrence: CA)
  Receive Date: 20140702
  Receipt Date: 20150626
  Transmission Date: 20150821
  Serious: Yes (Other)
  Sender: FDA-Public Use
  Company Number: CA-UCBSA-2014003897

PATIENT
  Age: 27 Year
  Sex: Female

DRUGS (7)
  1. ATIVAN [Concomitant]
     Active Substance: LORAZEPAM
     Indication: ANXIETY
     Dosage: 1 MG, AS NEEDED (PRN)
     Route: 048
  2. CERTOLIZUMAB PEGOL RA [Suspect]
     Active Substance: CERTOLIZUMAB PEGOL
     Dosage: 200 MG, Q2 WKS
     Route: 058
     Dates: start: 20120719, end: 20140320
  3. PLAQUENIL [Concomitant]
     Active Substance: HYDROXYCHLOROQUINE SULFATE
     Indication: RHEUMATOID ARTHRITIS
     Dosage: 100 MG, AT OD
     Route: 048
     Dates: start: 2010
  4. CLONAZEPAM. [Concomitant]
     Active Substance: CLONAZEPAM
     Indication: ANXIOLYTIC THERAPY
     Dosage: 0.25 MG, (OD)
     Route: 048
  5. TRAZODONE [Concomitant]
     Active Substance: TRAZODONE HYDROCHLORIDE
     Indication: ANTIDEPRESSANT THERAPY
     Dosage: 100 MG, OD
     Route: 048
  6. CERTOLIZUMAB PEGOL RA [Suspect]
     Active Substance: CERTOLIZUMAB PEGOL
     Indication: RHEUMATOID ARTHRITIS
     Dosage: 400 MG, Q2 WKS
     Route: 058
     Dates: start: 20120607, end: 20120705
  7. ZOLOFT [Concomitant]
     Active Substance: SERTRALINE HYDROCHLORIDE
     Indication: ANXIETY DISORDER
     Dosage: 200 MG, (OD)
     Route: 048

REACTIONS (1)
  - Candida infection [Not Recovered/Not Resolved]

NARRATIVE: CASE EVENT DATE: 201403
